FAERS Safety Report 6861932-8 (Version None)
Quarter: 2010Q3

REPORT INFORMATION
  Report Type: 
  Country: None (occurrence: None)
  Receive Date: 20100721
  Receipt Date: 20100713
  Transmission Date: 20110219
  Serious: Yes (Other)
  Sender: FDA-Public Use
  Company Number: US-ASTRAZENECA-2007UW11921

PATIENT
  Sex: Female

DRUGS (13)
  1. SEROQUEL [Suspect]
     Dosage: 50-500 MG
     Route: 048
     Dates: start: 20020803
  2. SEROQUEL [Suspect]
     Dosage: 100 MG TO 300 MG
     Route: 048
     Dates: start: 20060412
  3. CYMBALTA [Concomitant]
     Route: 048
     Dates: start: 20060405
  4. EFFEXOR XR [Concomitant]
     Dosage: 225-300 MG
     Dates: start: 20020702
  5. KLONOPIN [Concomitant]
     Dosage: 1.5-3 MG
     Dates: start: 20020730
  6. DEPAKOTE [Concomitant]
     Dosage: TWO AT NIGHT
     Dates: start: 20020930
  7. REMERON [Concomitant]
     Dosage: TWO AT NIGHT
     Dates: start: 20020730
  8. RISPERDAL [Concomitant]
     Dates: start: 20021209
  9. ABILIFY [Concomitant]
     Dosage: 15-20 MG
     Dates: start: 20030317
  10. VISTARIL [Concomitant]
     Dosage: 150 MG, BID PRN
     Dates: start: 20030604
  11. COGENTIN [Concomitant]
     Dates: start: 20030604
  12. XANAX [Concomitant]
     Dates: start: 20030715
  13. GEODON [Concomitant]
     Dates: start: 20030722

REACTIONS (3)
  - NEUROPATHY PERIPHERAL [None]
  - TARDIVE DYSKINESIA [None]
  - TYPE 2 DIABETES MELLITUS [None]
